FAERS Safety Report 6609081-8 (Version None)
Quarter: 2010Q1

REPORT INFORMATION
  Report Type: 
  Country: None (occurrence: None)
  Receive Date: 20100225
  Receipt Date: 20100225
  Transmission Date: 20100710
  Serious: Yes (Hospitalization)
  Sender: FDA-Public Use
  Company Number: None

PATIENT
  Sex: Female
  Weight: 48 kg

DRUGS (3)
  1. SODIUM THIOSULFATE [Suspect]
     Dosage: 48 MG
  2. CISPLATIN [Concomitant]
  3. DOXORUBICIN [Concomitant]

REACTIONS (5)
  - CONSTIPATION [None]
  - HYPOPHAGIA [None]
  - NAUSEA [None]
  - PARADOXICAL DRUG REACTION [None]
  - VOMITING [None]
